FAERS Safety Report 12165930 (Version 1)
Quarter: 2016Q1

REPORT INFORMATION
  Report Type: Spontaneous
  Country: US (occurrence: US)
  Receive Date: 20160309
  Receipt Date: 20160309
  Transmission Date: 20160526
  Serious: Yes (Hospitalization, Other)
  Sender: FDA-Public Use
  Company Number: US-ASTRAZENECA-2016SE23769

PATIENT
  Sex: Female
  Weight: 80.7 kg

DRUGS (27)
  1. TESSALON [Suspect]
     Active Substance: BENZONATATE
     Dosage: 1 CAPSULE AS NEEDED THREE TIMES A DAY
     Route: 065
  2. ALBUTEROL SULFATE. [Concomitant]
     Active Substance: ALBUTEROL SULFATE
     Dosage: AS DIRECTED EVERY 4 HRS AS REQUIRED
  3. PRAVASTATIN [Concomitant]
     Active Substance: PRAVASTATIN\PRAVASTATIN SODIUM
     Route: 048
  4. ANORO ELLIPTA [Concomitant]
     Active Substance: UMECLIDINIUM BROMIDE\VILANTEROL TRIFENATATE
     Dosage: 62.5 MCG/25MCG, ONE INHALATION ONCE DAILY
     Dates: end: 20160120
  5. COREG [Concomitant]
     Active Substance: CARVEDILOL
     Dosage: 1 TABLET WITH FOOD TWICE A DAY
  6. SPIRIVA [Suspect]
     Active Substance: TIOTROPIUM BROMIDE MONOHYDRATE
     Route: 065
  7. LEVOTHYROXINE SODIUM. [Concomitant]
     Active Substance: LEVOTHYROXINE SODIUM
  8. NEXIUM [Concomitant]
     Active Substance: ESOMEPRAZOLE MAGNESIUM
     Dosage: AS REQUIRED
  9. FLUTICASONE FUROATE [Concomitant]
     Active Substance: FLUTICASONE FUROATE
     Dosage: 2 SPRAYS ONCE A DAY
  10. VERAMYST [Concomitant]
     Active Substance: FLUTICASONE FUROATE
     Dosage: 2 PUFFS IN EACH NOSTRIL ONCE A DAY
  11. COUMADIN [Concomitant]
     Active Substance: WARFARIN SODIUM
  12. DALIRESP [Concomitant]
     Active Substance: ROFLUMILAST
  13. METOPROLOL TARTRATE. [Concomitant]
     Active Substance: METOPROLOL TARTRATE
  14. DILTIAZEM [Concomitant]
     Active Substance: DILTIAZEM
     Dosage: 2 TABLET BEFORE MEALS ONCE A DAY
  15. MONTELUKAST SODIUM. [Concomitant]
     Active Substance: MONTELUKAST SODIUM
     Dosage: 1 TABLET IN THE EVENING ONCE A DAY
  16. VENTOLIN HFA [Concomitant]
     Active Substance: ALBUTEROL SULFATE
     Dosage: 108 (90 BASE) MCG/ACT AEROSOL SOLUTION 2 PUFFS AS NEEDED EVERY 4 HRS
  17. EPINEPHRINE. [Concomitant]
     Active Substance: EPINEPHRINE
  18. REVATIO [Suspect]
     Active Substance: SILDENAFIL CITRATE
     Route: 065
  19. FUROSEMIDE. [Concomitant]
     Active Substance: FUROSEMIDE
     Dosage: DAILY
  20. OMEPRAZOLE. [Concomitant]
     Active Substance: OMEPRAZOLE
  21. CROMOLYN [Concomitant]
     Active Substance: CROMOLYN
  22. ATIVAN [Concomitant]
     Active Substance: LORAZEPAM
  23. TUDORZA PRESSAIR [Suspect]
     Active Substance: ACLIDINIUM BROMIDE
     Route: 055
  24. ELIQUIS [Suspect]
     Active Substance: APIXABAN
     Route: 065
  25. ANORO ELLIPTA [Concomitant]
     Active Substance: UMECLIDINIUM BROMIDE\VILANTEROL TRIFENATATE
     Dosage: 62.5 MCG/25MCG, ONE INHALATION ONCE DAILY
     Dates: end: 20160120
  26. FLUTICASONE FUROATE [Concomitant]
     Active Substance: FLUTICASONE FUROATE
     Dosage: 200MCG/ACT, ONE PUFF DAILY
  27. GEMFIBROZIL. [Concomitant]
     Active Substance: GEMFIBROZIL

REACTIONS (5)
  - Pneumonia [Unknown]
  - Asthenia [Unknown]
  - Dyspnoea [Unknown]
  - Respiratory failure [Unknown]
  - Heart rate decreased [Unknown]
